FAERS Safety Report 16828314 (Version 1)
Quarter: 2019Q3

REPORT INFORMATION
  Report Type: Spontaneous
  Country: US (occurrence: US)
  Receive Date: 20190919
  Receipt Date: 20190919
  Transmission Date: 20191005
  Serious: No
  Sender: FDA-Public Use
  Company Number: US-AMAG PHARMACEUTICALS, INC.-AMAG201903839

PATIENT
  Sex: Male

DRUGS (1)
  1. VYLEESI [Suspect]
     Active Substance: BREMELANOTIDE ACETATE
     Indication: ERECTILE DYSFUNCTION
     Dosage: INCREASING DOSES INCLUDING 0.1 ML, 0.2 ML, 0.3 ML, AND 0.4 ML, TAKEN AT UNSPECIFIED FREQUENCY TO STA
     Route: 065
     Dates: start: 2019

REACTIONS (4)
  - Off label use [Unknown]
  - Nausea [Unknown]
  - Erection increased [Unknown]
  - Libido increased [Unknown]

NARRATIVE: CASE EVENT DATE: 2019
